FAERS Safety Report 13054656 (Version 1)
Quarter: 2016Q4

REPORT INFORMATION
  Report Type: Spontaneous
  Country: JP (occurrence: JP)
  Receive Date: 20161222
  Receipt Date: 20161222
  Transmission Date: 20170207
  Serious: Yes (Hospitalization)
  Sender: FDA-Public Use
  Company Number: JP-TEVA-2016-JP-003085J

PATIENT
  Age: 84 Year
  Sex: Female

DRUGS (8)
  1. MIYA-BM [Concomitant]
     Active Substance: CLOSTRIDIUM BUTYRICUM SPORES STRAIN M-55
     Route: 065
  2. WARFARIN K TABLET 1MG ^TEVA^ [Suspect]
     Active Substance: WARFARIN POTASSIUM
     Indication: THROMBOSIS PROPHYLAXIS
     Dosage: .5 MILLIGRAM DAILY;
     Route: 048
  3. ALDACTONE A [Suspect]
     Active Substance: SPIRONOLACTONE
     Dosage: 1 DOSAGE FORMS DAILY;
     Route: 048
     Dates: start: 20160615, end: 20160630
  4. SELARA [Suspect]
     Active Substance: EPLERENONE
     Route: 048
  5. WARFARIN [Suspect]
     Active Substance: WARFARIN
     Indication: THROMBOSIS PROPHYLAXIS
     Dosage: 3 MILLIGRAM DAILY;
     Route: 048
  6. BEPRICOR [Concomitant]
     Active Substance: BEPRIDIL
     Route: 065
  7. AMLODIPINE [Concomitant]
     Active Substance: AMLODIPINE BESYLATE
     Route: 065
  8. DOGMATYL [Concomitant]
     Active Substance: SULPIRIDE
     Route: 065

REACTIONS (6)
  - Hyponatraemia [Unknown]
  - Abdominal pain [Recovered/Resolved]
  - Drug effect increased [Unknown]
  - Weight decreased [Unknown]
  - Palpitations [Unknown]
  - Diarrhoea [Recovered/Resolved]

NARRATIVE: CASE EVENT DATE: 201606
